FAERS Safety Report 25096193 (Version 2)
Quarter: 2025Q2

REPORT INFORMATION
  Report Type: Spontaneous
  Country: IT (occurrence: IT)
  Receive Date: 20250319
  Receipt Date: 20250404
  Transmission Date: 20250716
  Serious: Yes (Life-Threatening, Hospitalization, Disabling, Other)
  Sender: MERCK SHARP AND DOHME
  Company Number: None

PATIENT
  Age: 75 Year
  Sex: Female

DRUGS (1)
  1. KEYTRUDA [Suspect]
     Active Substance: PEMBROLIZUMAB
     Indication: Adenocarcinoma of colon
     Dosage: DOSE DESCRIPTION : 200 MG EVERY 21 DAYS; 19 ADMINISTRATIONS PERFORMED?DAILY DOSE : 9.4 MILLIGRAM?...
     Route: 042
     Dates: start: 20230519, end: 20241004

REACTIONS (4)
  - Autoimmune lung disease [Recovering/Resolving]
  - Frontotemporal dementia [Not Recovered/Not Resolved]
  - Loss of consciousness [Not Recovered/Not Resolved]
  - Cerebral atrophy [Not Recovered/Not Resolved]

NARRATIVE: CASE EVENT DATE: 20230101
